FAERS Safety Report 20422037 (Version 1)
Quarter: 2022Q1

REPORT INFORMATION
  Report Type: Spontaneous
  Country: US (occurrence: None)
  Receive Date: 20220203
  Receipt Date: 20220203
  Transmission Date: 20220424
  Serious: Yes (Other)
  Sender: FDA-Public Use
  Company Number: None

PATIENT
  Age: 66 Year
  Sex: Male
  Weight: 113.4 kg

DRUGS (1)
  1. MOLNUPIRAVIR [Suspect]
     Active Substance: MOLNUPIRAVIR
     Indication: SARS-CoV-2 test positive
     Dosage: FREQUENCY : EVERY 12 HOURS;??4 CAP PO EVERY 12 HOURS FOR 5 DAYS?
     Route: 048
     Dates: start: 20220120, end: 20220123

REACTIONS (4)
  - Dizziness [None]
  - Vomiting [None]
  - Loss of personal independence in daily activities [None]
  - Poor quality sleep [None]

NARRATIVE: CASE EVENT DATE: 20220120
